FAERS Safety Report 7430136-2 (Version None)
Quarter: 2011Q2

REPORT INFORMATION
  Report Type: 
  Country: None (occurrence: None)
  Receive Date: 20110421
  Receipt Date: 20100329
  Transmission Date: 20111010
  Serious: Yes (Hospitalization)
  Sender: FDA-Public Use
  Company Number: US-ASTRAZENECA-2010SE13804

PATIENT
  Age: 65 Year
  Sex: Male
  Weight: 88.5 kg

DRUGS (20)
  1. NEXIUM [Concomitant]
     Route: 048
     Dates: start: 20090208
  2. VERSED [Concomitant]
     Dates: start: 20090602, end: 20090602
  3. TOPROL-XL [Suspect]
     Route: 048
     Dates: start: 20090305, end: 20090602
  4. FENTANYL [Concomitant]
     Dates: start: 20090602, end: 20090602
  5. NITROGLYCERIN [Concomitant]
     Dates: start: 20090515, end: 20090515
  6. CLOPIDOGREL [Concomitant]
     Dates: start: 20090208, end: 20090208
  7. DIOVAN [Suspect]
     Route: 048
     Dates: start: 20090602, end: 20090602
  8. CLOPIDOGREL [Concomitant]
     Dates: start: 20090515, end: 20090515
  9. TOPROL-XL [Suspect]
     Route: 048
     Dates: start: 20090604
  10. DIOVAN [Suspect]
     Route: 048
     Dates: start: 20090604
  11. CEFAZOLIN [Concomitant]
     Dates: start: 20090602, end: 20090603
  12. ADENOSINE [Concomitant]
     Dates: start: 20090515, end: 20090515
  13. ASPIRIN [Concomitant]
     Dates: start: 20090515, end: 20090515
  14. ATORVASTATIN [Concomitant]
     Dates: start: 20090208
  15. ANCEF [Concomitant]
     Dates: start: 20090602, end: 20090602
  16. ARTIFICAL TEARS [Concomitant]
     Dates: start: 20090604, end: 20090604
  17. ASPIRIN [Concomitant]
     Dates: start: 20090401
  18. VERSED [Concomitant]
     Dates: start: 20090515, end: 20090515
  19. FENTANYL [Concomitant]
     Dates: start: 20090515, end: 20090515
  20. LORTAB [Concomitant]
     Dates: start: 20090604, end: 20090604

REACTIONS (1)
  - HYPOTENSION [None]
